FAERS Safety Report 10045867 (Version 2)
Quarter: 2014Q2

REPORT INFORMATION
  Report Type: Spontaneous
  Country: ES (occurrence: ES)
  Receive Date: 20140329
  Receipt Date: 20140430
  Transmission Date: 20141212
  Serious: Yes (Hospitalization)
  Sender: FDA-Public Use
  Company Number: ES-ROCHE-1373707

PATIENT
  Age: 50 Year
  Sex: Female

DRUGS (3)
  1. XOLAIR [Suspect]
     Indication: ASTHMA
     Route: 058
     Dates: start: 2010
  2. XOLAIR [Suspect]
     Route: 058
     Dates: start: 201010
  3. XOLAIR [Suspect]
     Route: 058
     Dates: start: 201403

REACTIONS (4)
  - Cervical myelopathy [Not Recovered/Not Resolved]
  - Pain [Unknown]
  - Muscle atrophy [Unknown]
  - Paraesthesia [Unknown]
